FAERS Safety Report 6292957-1 (Version None)
Quarter: 2009Q3

REPORT INFORMATION
  Report Type: 
  Country: None (occurrence: None)
  Receive Date: 20090731
  Receipt Date: 20090729
  Transmission Date: 20100115
  Serious: Yes (Death)
  Sender: FDA-Public Use
  Company Number: JP-JNJFOC-20090709917

PATIENT
  Sex: Male
  Weight: 45 kg

DRUGS (5)
  1. ITRIZOLE [Suspect]
     Route: 041
  2. ITRIZOLE [Suspect]
     Indication: BRONCHOPULMONARY ASPERGILLOSIS
     Route: 041
  3. MUCOSOLVAN [Concomitant]
     Route: 048
  4. MUCODYNE [Concomitant]
     Route: 048
  5. CLEANAL [Concomitant]
     Route: 048

REACTIONS (1)
  - INTERSTITIAL LUNG DISEASE [None]
